FAERS Safety Report 18237619 (Version 2)
Quarter: 2020Q3

REPORT INFORMATION
  Report Type: Spontaneous
  Country: US (occurrence: US)
  Receive Date: 20200907
  Receipt Date: 20200920
  Transmission Date: 20201103
  Serious: Yes (Hospitalization)
  Sender: FDA-Public Use
  Company Number: US-TEVA-2020-US-1824726

PATIENT
  Age: 89 Year
  Sex: Female

DRUGS (3)
  1. VERAPAMIL [Interacting]
     Active Substance: VERAPAMIL HYDROCHLORIDE
     Dosage: 280 MILLIGRAM DAILY;
     Route: 065
  2. MILK OF MAGNESIA [Interacting]
     Active Substance: MAGNESIUM HYDROXIDE
     Indication: CONSTIPATION
     Route: 065
  3. VERAPAMIL [Suspect]
     Active Substance: VERAPAMIL HYDROCHLORIDE
     Indication: HYPERTENSION
     Dosage: 240 MILLIGRAM DAILY;
     Route: 065

REACTIONS (2)
  - Nodal arrhythmia [Recovered/Resolved]
  - Drug interaction [Recovered/Resolved]
